FAERS Safety Report 13538410 (Version 2)
Quarter: 2017Q2

REPORT INFORMATION
  Report Type: Spontaneous
  Country: IT (occurrence: IT)
  Receive Date: 20170512
  Receipt Date: 20170529
  Transmission Date: 20170830
  Serious: No
  Sender: FDA-Public Use
  Company Number: IT-009507513-1705ITA002573

PATIENT
  Age: 74 Year
  Sex: Female
  Weight: 65 kg

DRUGS (5)
  1. ARIXTRA [Suspect]
     Active Substance: FONDAPARINUX SODIUM
     Indication: THROMBOPHLEBITIS
     Dosage: 2.5 MG DAILY
     Route: 058
     Dates: start: 20170125, end: 20170203
  2. CUBICIN [Suspect]
     Active Substance: DAPTOMYCIN
     Indication: STAPHYLOCOCCAL SEPSIS
     Dosage: 500 MG DAILY
     Route: 042
     Dates: start: 20170124, end: 20170205
  3. CEFTOBIPROLE MEDOCARIL [Suspect]
     Active Substance: CEFTOBIPROLE MEDOCARIL
     Indication: STAPHYLOCOCCAL SEPSIS
     Dosage: 1500 MG DAILY
     Route: 042
     Dates: start: 20170124, end: 20170206
  4. PANTOPRAZOLE [Concomitant]
     Active Substance: PANTOPRAZOLE
     Indication: PROPHYLAXIS AGAINST GASTROINTESTINAL ULCER
     Dosage: 40 MG, UNK
     Route: 042
     Dates: start: 20170110, end: 20170215
  5. FUROSEMIDE. [Concomitant]
     Active Substance: FUROSEMIDE
     Indication: FLUID RETENTION
     Dosage: 20 MG, UNK
     Route: 042
     Dates: start: 20170124, end: 20170215

REACTIONS (1)
  - Vasculitis [Recovered/Resolved]

NARRATIVE: CASE EVENT DATE: 20170129
